FAERS Safety Report 24782876 (Version 1)
Quarter: 2024Q4

REPORT INFORMATION
  Report Type: Spontaneous
  Country: CN (occurrence: CN)
  Receive Date: 20241227
  Receipt Date: 20241227
  Transmission Date: 20250114
  Serious: Yes (Other)
  Sender: BAYER HEALTHCARE PHARMACEUTICALS INC.
  Company Number: CN-BAYER-2024A181601

PATIENT
  Age: 65 Year
  Sex: Male
  Weight: 75 kg

DRUGS (1)
  1. AVELOX [Suspect]
     Active Substance: MOXIFLOXACIN HYDROCHLORIDE
     Indication: Pneumonia
     Dosage: 0.4 G, QD
     Route: 041
     Dates: start: 20241125, end: 20241125

REACTIONS (14)
  - Epilepsy [Recovering/Resolving]
  - Seizure [Recovered/Resolved]
  - Unresponsive to stimuli [None]
  - Coma [Recovering/Resolving]
  - Blood pressure increased [Recovered/Resolved]
  - Tremor [None]
  - Chest discomfort [None]
  - Dyspnoea [None]
  - Asthenia [None]
  - Musculoskeletal stiffness [None]
  - Eye movement disorder [None]
  - Urinary incontinence [None]
  - Oxygen saturation decreased [Recovering/Resolving]
  - Heart rate increased [None]

NARRATIVE: CASE EVENT DATE: 20241125
